FAERS Safety Report 6293904-9 (Version None)
Quarter: 2009Q3

REPORT INFORMATION
  Report Type: 
  Country: None (occurrence: None)
  Receive Date: 20090803
  Receipt Date: 20090428
  Transmission Date: 20100115
  Serious: No
  Sender: FDA-Public Use
  Company Number: US-BAYER-200917363NA

PATIENT
  Age: 22 Year
  Sex: Female
  Weight: 67 kg

DRUGS (2)
  1. MIRENA [Suspect]
     Indication: CONTRACEPTION
     Dosage: CONTINUOUS
     Route: 015
     Dates: start: 20090123, end: 20090123
  2. TRINESSA [Concomitant]
     Indication: CONTRACEPTION
     Route: 048
     Dates: start: 20081201

REACTIONS (3)
  - DISCOMFORT [None]
  - PROCEDURAL COMPLICATION [None]
  - PROCEDURAL PAIN [None]
